FAERS Safety Report 13537636 (Version 1)
Quarter: 2017Q2

REPORT INFORMATION
  Report Type: Report from Study
  Country: JP (occurrence: JP)
  Receive Date: 20170511
  Receipt Date: 20170511
  Transmission Date: 20170830
  Serious: Yes (Hospitalization, Disabling, Other)
  Sender: FDA-Public Use
  Company Number: JP-ASTRAZENECA-2017SE49460

PATIENT
  Age: 29040 Day
  Sex: Female
  Weight: 54 kg

DRUGS (28)
  1. NESP [Suspect]
     Active Substance: DARBEPOETIN ALFA
     Route: 065
     Dates: start: 20170424
  2. NORVASC [Concomitant]
     Active Substance: AMLODIPINE BESYLATE
     Indication: HYPERTENSION
     Route: 048
     Dates: start: 20090417
  3. FERRUM [Concomitant]
     Active Substance: FERROUS FUMARATE
     Indication: IRON DEFICIENCY ANAEMIA
     Route: 048
     Dates: start: 20160205
  4. CONIEL [Suspect]
     Active Substance: BENIDIPINE HYDROCHLORIDE
     Indication: HYPERTENSION
     Route: 048
     Dates: end: 20170414
  5. FESIN [Suspect]
     Active Substance: IRON SUCROSE
     Indication: IRON DEFICIENCY ANAEMIA
     Dosage: 40.0MG UNKNOWN
     Route: 042
     Dates: start: 20160401, end: 20160506
  6. ARTIST [Concomitant]
     Active Substance: CARVEDILOL
     Indication: HYPERTENSION
     Route: 048
     Dates: start: 20090417
  7. KINEDAK [Concomitant]
     Active Substance: EPALRESTAT
     Indication: DIABETIC NEUROPATHY
     Route: 048
     Dates: start: 20090724, end: 20170414
  8. LASIX [Concomitant]
     Active Substance: FUROSEMIDE
     Indication: OEDEMA DUE TO RENAL DISEASE
     Route: 048
     Dates: start: 20160122
  9. KREMEZIN [Concomitant]
     Active Substance: ACTIVATED CHARCOAL
     Indication: CHRONIC KIDNEY DISEASE
     Route: 048
     Dates: start: 20160205, end: 20160518
  10. TAKEPRON [Concomitant]
     Active Substance: LANSOPRAZOLE
     Route: 042
     Dates: start: 20170414, end: 20170425
  11. FENTANYL. [Concomitant]
     Active Substance: FENTANYL
     Indication: SEDATION
     Dosage: 0.35 MG-GRADUAL DOSE REDUCTION
     Route: 041
     Dates: start: 20170414, end: 20170418
  12. ALBUMINAR [Concomitant]
     Active Substance: ALBUMIN HUMAN
     Indication: SHOCK
     Route: 041
     Dates: start: 20170414, end: 20170416
  13. ONGLYZA [Suspect]
     Active Substance: SAXAGLIPTIN HYDROCHLORIDE
     Indication: TYPE 2 DIABETES MELLITUS
     Route: 048
     Dates: end: 20170414
  14. DIOVAN [Concomitant]
     Active Substance: VALSARTAN
     Indication: HYPERTENSION
     Route: 048
     Dates: start: 20090417
  15. TENELIA [Concomitant]
     Active Substance: TENELIGLIPTIN
     Indication: DIABETES MELLITUS
     Route: 048
     Dates: start: 20160219
  16. FESIN [Suspect]
     Active Substance: IRON SUCROSE
     Indication: IRON DEFICIENCY ANAEMIA
     Dosage: 40.0MG UNKNOWN
     Route: 042
     Dates: end: 20170414
  17. JUSO [Concomitant]
     Active Substance: SODIUM BICARBONATE
     Indication: ACIDOSIS
     Route: 048
     Dates: start: 20150605, end: 20160518
  18. IRBETAN [Concomitant]
     Active Substance: IRBESARTAN
     Indication: HYPERTENSION
     Route: 048
     Dates: end: 20170414
  19. PRECEDEX [Concomitant]
     Active Substance: DEXMEDETOMIDINE HYDROCHLORIDE
     Indication: SEDATION
     Dosage: 20.0UG UNKNOWN
     Route: 041
     Dates: start: 20170414, end: 20170417
  20. NOREPINEPHRINE. [Concomitant]
     Active Substance: NOREPINEPHRINE
     Indication: SHOCK
     Dosage: 0.9MG UNKNOWN
     Route: 055
     Dates: start: 20170414, end: 20170416
  21. NESP [Suspect]
     Active Substance: DARBEPOETIN ALFA
     Route: 065
     Dates: start: 20160105, end: 20170414
  22. FEBURIC [Concomitant]
     Active Substance: FEBUXOSTAT
     Indication: HYPERURICAEMIA
     Route: 048
     Dates: start: 20150601
  23. EDIROL [Concomitant]
     Active Substance: ELDECALCITOL
     Indication: OSTEOPOROSIS
     Route: 048
     Dates: start: 20150807, end: 20170414
  24. LIPITOR [Concomitant]
     Active Substance: ATORVASTATIN CALCIUM
     Indication: HYPERLIPIDAEMIA
     Route: 048
     Dates: start: 20090417
  25. GLUCOSE [Concomitant]
     Active Substance: DEXTROSE
     Indication: IRON DEFICIENCY ANAEMIA
     Dosage: 8.0ML UNKNOWN
     Route: 042
     Dates: start: 20160401, end: 20160506
  26. DOXAZOSIN [Concomitant]
     Active Substance: DOXAZOSIN\DOXAZOSIN MESYLATE
     Indication: HYPERTENSION
     Route: 048
     Dates: end: 20170414
  27. ARGAMATE [Concomitant]
     Active Substance: CALCIUM POLYSTYRENE SULFONATE
     Indication: HYPERKALAEMIA
     Dosage: JELLY; 25 G TID
     Route: 048
     Dates: end: 20170414
  28. MEROPEN [Concomitant]
     Active Substance: MEROPENEM
     Indication: PERITONITIS
     Route: 041
     Dates: start: 20170414, end: 20170417

REACTIONS (4)
  - Cerebral infarction [Recovered/Resolved with Sequelae]
  - Shunt occlusion [Recovered/Resolved]
  - Peritonitis [Recovered/Resolved with Sequelae]
  - Diverticular perforation [Recovered/Resolved with Sequelae]

NARRATIVE: CASE EVENT DATE: 20170116
